FAERS Safety Report 20137824 (Version 2)
Quarter: 2022Q2

REPORT INFORMATION
  Report Type: Spontaneous
  Country: FR (occurrence: FR)
  Receive Date: 20211202
  Receipt Date: 20220622
  Transmission Date: 20220720
  Serious: Yes (Congenital Anomaly, Other)
  Sender: FDA-Public Use
  Company Number: FR-ABBVIE-21K-056-4180639-00

PATIENT
  Sex: Male
  Weight: 2.55 kg

DRUGS (2)
  1. VALPROATE SODIUM [Suspect]
     Active Substance: VALPROATE SODIUM
     Indication: Product used for unknown indication
     Route: 064
  2. TEGRETOL [Concomitant]
     Active Substance: CARBAMAZEPINE
     Indication: Product used for unknown indication

REACTIONS (17)
  - Dysmorphism [Unknown]
  - Foetal exposure during pregnancy [Unknown]
  - Congenital musculoskeletal disorder of limbs [Unknown]
  - Psychomotor retardation [Unknown]
  - Speech disorder developmental [Unknown]
  - Behaviour disorder [Unknown]
  - Developmental delay [Unknown]
  - Disturbance in social behaviour [Unknown]
  - Disturbance in attention [Unknown]
  - Learning disorder [Unknown]
  - Intellectual disability [Unknown]
  - Autism spectrum disorder [Unknown]
  - Ear, nose and throat disorder [Unknown]
  - Visual impairment [Unknown]
  - Gastrooesophageal reflux disease [Unknown]
  - Inguinal hernia [Unknown]
  - Neurodevelopmental disorder [Unknown]
